FAERS Safety Report 8114932-4 (Version None)
Quarter: 2012Q1

REPORT INFORMATION
  Report Type: 
  Country: None (occurrence: None)
  Receive Date: 20120206
  Receipt Date: 20120202
  Transmission Date: 20120608
  Serious: Yes (Other)
  Sender: FDA-Public Use
  Company Number: US-AMGEN-USASP2012006979

PATIENT
  Age: 64 Year
  Sex: Female

DRUGS (5)
  1. NEUPOGEN [Suspect]
     Indication: NEUTROPENIA
     Dosage: 480 MUG, Q12H
     Dates: start: 20120131
  2. TAXOTERE [Concomitant]
     Indication: BREAST CANCER
     Dates: start: 20120124
  3. ADRIAMYCIN PFS [Concomitant]
     Indication: BREAST CANCER
     Dates: start: 20120124
  4. NEULASTA [Suspect]
     Indication: NEUTROPENIA
     Dates: start: 20120125
  5. CYTOXAN [Concomitant]
     Indication: BREAST CANCER
     Dates: start: 20120124

REACTIONS (1)
  - DRUG INEFFECTIVE [None]
